FAERS Safety Report 10935420 (Version 2)
Quarter: 2015Q1

REPORT INFORMATION
  Report Type: Spontaneous
  Country: US (occurrence: US)
  Receive Date: 20150320
  Receipt Date: 20150323
  Transmission Date: 20150721
  Serious: Yes (Hospitalization, Other)
  Sender: FDA-Public Use
  Company Number: US-009507513-1109USA01756

PATIENT
  Sex: Female
  Weight: 51.25 kg

DRUGS (2)
  1. ALENDRONATE SODIUM. [Suspect]
     Active Substance: ALENDRONATE SODIUM
     Indication: OSTEOPOROSIS
     Dosage: 70 MG, UNK
     Route: 048
     Dates: start: 20081119, end: 20090908
  2. FOSAMAX [Suspect]
     Active Substance: ALENDRONATE SODIUM
     Indication: OSTEOPOROSIS
     Dosage: 10 MG, UNK
     Route: 048
     Dates: start: 19990106, end: 20090908

REACTIONS (17)
  - Body height decreased [Unknown]
  - Bone density decreased [Unknown]
  - Osteoarthritis [Unknown]
  - Scoliosis [Unknown]
  - Alcohol use [Unknown]
  - Hypercholesterolaemia [Unknown]
  - Hypertension [Unknown]
  - Urge incontinence [Unknown]
  - Fibroadenoma of breast [Unknown]
  - Cataract [Unknown]
  - Spinal osteoarthritis [Unknown]
  - Osteoarthritis [Unknown]
  - Open reduction of fracture [Recovered/Resolved]
  - Spinal fracture [Unknown]
  - Femur fracture [Recovered/Resolved]
  - Colon adenoma [Unknown]
  - Lordosis [Unknown]

NARRATIVE: CASE EVENT DATE: 199902
